FAERS Safety Report 13183502 (Version 3)
Quarter: 2017Q1

REPORT INFORMATION
  Report Type: Spontaneous
  Country: FR (occurrence: FR)
  Receive Date: 20170203
  Receipt Date: 20170320
  Transmission Date: 20170428
  Serious: Yes (Hospitalization, Other)
  Sender: FDA-Public Use
  Company Number: FR-ACCORD-047921

PATIENT
  Age: 73 Year
  Sex: Male

DRUGS (11)
  1. LYSANXIA [Concomitant]
     Active Substance: PRAZEPAM
     Dosage: 10MG ONE HALF IN THE EVENING
  2. LOVENOX [Concomitant]
     Active Substance: ENOXAPARIN SODIUM
     Indication: PRODUCT USED FOR UNKNOWN INDICATION
     Dosage: STRENGTH:4000 UI ANTI-XA/0.4 ML
     Route: 058
     Dates: start: 20170110, end: 20170119
  3. KARDEGIC [Concomitant]
     Active Substance: ASPIRIN LYSINE
     Dosage: STRENGTH:75 MG ONCE AT NOON
  4. PAROXETINE ARROW [Concomitant]
     Active Substance: PAROXETINE
     Dosage: STRENGTH: 20 MG?ONCE IN THE MORNING
  5. GEMCITABINE ACCORD [Suspect]
     Active Substance: GEMCITABINE HYDROCHLORIDE
     Indication: SQUAMOUS CELL CARCINOMA OF LUNG
     Dosage: 1875 MG ONCE WEEKLY?1875 MG AT DAY1 AND DAY8 ?STRENGTH: 100MG/ML
     Route: 042
     Dates: start: 20161227, end: 20170103
  6. EUPANTOL [Concomitant]
     Active Substance: PANTOPRAZOLE SODIUM
     Dosage: 40MG ONCE IN THE EVENING
  7. GRANOCYTE [Concomitant]
     Active Substance: LENOGRASTIM
     Dates: start: 20161227
  8. PACLITAXEL/PACLITAXEL LIPOSOME [Suspect]
     Active Substance: PACLITAXEL
     Indication: PRODUCT USED FOR UNKNOWN INDICATION
  9. HEMIGOXINE [Concomitant]
     Active Substance: DIGOXIN
     Dosage: 0.125MG ONCE IN THE MORNING
  10. TEMERIT [Concomitant]
     Active Substance: NEBIVOLOL
     Dosage: STRENGTH: 5 MG ?2.5 MG IN THE MORNING AND 2.5 MG IN THE EVENING
  11. DAFALGAN [Concomitant]
     Active Substance: ACETAMINOPHEN
     Dosage: STRENGTH: 500 MG?IF PAIN OR FEVER

REACTIONS (7)
  - Neuropathy peripheral [Unknown]
  - Toxic skin eruption [Recovered/Resolved]
  - Pyrexia [Unknown]
  - Urticaria [Recovered/Resolved]
  - Infection [Recovered/Resolved]
  - Leukocytosis [Unknown]
  - Thrombocytosis [Recovered/Resolved]

NARRATIVE: CASE EVENT DATE: 20161227
